FAERS Safety Report 17396062 (Version 2)
Quarter: 2020Q4

REPORT INFORMATION
  Report Type: Spontaneous
  Country: US (occurrence: US)
  Receive Date: 20200210
  Receipt Date: 20201215
  Transmission Date: 20210113
  Serious: No
  Sender: FDA-Public Use
  Company Number: US-VERTEX PHARMACEUTICALS-2020-002160

PATIENT
  Sex: Male
  Weight: 23 kg

DRUGS (1)
  1. ORKAMBI [Suspect]
     Active Substance: IVACAFTOR\LUMACAFTOR
     Indication: CYSTIC FIBROSIS
     Dosage: 2 DOSAGE FORM, BID
     Route: 048
     Dates: start: 201806, end: 202002

REACTIONS (3)
  - Migraine [Recovered/Resolved]
  - Chest pain [Recovering/Resolving]
  - Bacterial infection [Not Recovered/Not Resolved]
